FAERS Safety Report 8468133-0 (Version None)
Quarter: 2012Q2

REPORT INFORMATION
  Report Type: 
  Country: None (occurrence: None)
  Receive Date: 20120626
  Receipt Date: 20120618
  Transmission Date: 20120825
  Serious: Yes (Hospitalization)
  Sender: FDA-Public Use
  Company Number: DE-ROCHE-1080125

PATIENT
  Sex: Male
  Weight: 57 kg

DRUGS (3)
  1. ACTEMRA [Suspect]
     Indication: RHEUMATOID ARTHRITIS
     Route: 042
     Dates: start: 20101117, end: 20110816
  2. METHOTREXATE [Suspect]
     Indication: RHEUMATOID ARTHRITIS
     Route: 058
     Dates: start: 20110901
  3. SYNTESTAN [Concomitant]
     Indication: RHEUMATOID ARTHRITIS
     Route: 048
     Dates: start: 20110501

REACTIONS (6)
  - INFECTION [None]
  - FISTULA [None]
  - PSEUDARTHROSIS [None]
  - SOFT TISSUE DISORDER [None]
  - WOUND DEHISCENCE [None]
  - IMPAIRED HEALING [None]
